FAERS Safety Report 6785786-3 (Version None)
Quarter: 2010Q2

REPORT INFORMATION
  Report Type: 
  Country: None (occurrence: None)
  Receive Date: 20100623
  Receipt Date: 20100615
  Transmission Date: 20101027
  Serious: Yes (Hospitalization)
  Sender: FDA-Public Use
  Company Number: DE-MPIJNJ-2010-02760

PATIENT

DRUGS (4)
  1. VELCADE [Suspect]
     Indication: MULTIPLE MYELOMA
     Dosage: 2.6 MG, UNK
     Route: 042
     Dates: start: 20070906, end: 20080114
  2. GLIMEPRID [Concomitant]
     Indication: DIABETES MELLITUS
     Dosage: 2 MG, UNK
     Route: 048
  3. NOVAMINSULFON [Concomitant]
     Indication: PAIN
     Dosage: 500 MG, UNK
     Route: 048
  4. ACYCLOVIR [Concomitant]
     Indication: HERPES ZOSTER
     Dosage: 200 MG, UNK
     Route: 048
     Dates: start: 20071113, end: 20071228

REACTIONS (1)
  - SYNCOPE [None]
